FAERS Safety Report 8175269-0 (Version None)
Quarter: 2012Q1

REPORT INFORMATION
  Report Type: 
  Country: None (occurrence: None)
  Receive Date: 20120229
  Receipt Date: 20120222
  Transmission Date: 20120608
  Serious: Yes (Hospitalization)
  Sender: FDA-Public Use
  Company Number: US-CELGENEUS-163-21880-12022651

PATIENT
  Sex: Male
  Weight: 113.5 kg

DRUGS (8)
  1. REVLIMID [Suspect]
     Indication: MULTIPLE MYELOMA
     Dosage: 15 MILLIGRAM
     Route: 048
     Dates: start: 20111220
  2. NEURONTIN [Concomitant]
     Dosage: 100 MILLIGRAM
     Route: 065
  3. PERCOCET [Concomitant]
     Dosage: 5/325MG
     Route: 065
  4. COLACE [Concomitant]
     Dosage: 100 MILLIGRAM
     Route: 065
  5. ARMODAFINIL [Concomitant]
     Dosage: 100 MILLIGRAM
     Route: 065
  6. FEOSOL [Concomitant]
     Dosage: 45 MILLIGRAM
     Route: 065
  7. TOPAMAX [Concomitant]
     Dosage: 25 MILLIGRAM
     Route: 065
  8. CATAPRES [Concomitant]
     Dosage: 1 MILLIGRAM
     Route: 061

REACTIONS (2)
  - BODY TEMPERATURE INCREASED [None]
  - RESPIRATORY DISORDER [None]
